FAERS Safety Report 19132195 (Version 2)
Quarter: 2021Q2

REPORT INFORMATION
  Report Type: Spontaneous
  Country: RU (occurrence: RU)
  Receive Date: 20210413
  Receipt Date: 20210419
  Transmission Date: 20210717
  Serious: Yes (Life-Threatening, Hospitalization)
  Sender: FDA-Public Use
  Company Number: RU-TEVA-2021-RU-1900677

PATIENT
  Age: 45 Year
  Sex: Female

DRUGS (1)
  1. PACLITAXEL? PLIVA [Suspect]
     Active Substance: PACLITAXEL
     Route: 065

REACTIONS (2)
  - Tumour necrosis [Recovered/Resolved]
  - Peritonitis [Recovered/Resolved]

NARRATIVE: CASE EVENT DATE: 20210304
